FAERS Safety Report 4386475-5 (Version None)
Quarter: 2004Q2

REPORT INFORMATION
  Report Type: 
  Country: None (occurrence: None)
  Receive Date: 20040623
  Receipt Date: 20040616
  Transmission Date: 20050107
  Serious: Yes (Death, Other)
  Sender: FDA-Public Use
  Company Number: 2004US000695

PATIENT
  Age: 41 Year
  Sex: Male

DRUGS (4)
  1. PROGRAF [Suspect]
     Indication: GRAFT VERSUS HOST DISEASE
  2. METHYLPREDNISOLONE [Suspect]
     Indication: GRAFT VERSUS HOST DISEASE
  3. CELLCEPT [Suspect]
     Indication: GRAFT VERSUS HOST DISEASE
  4. DACLIZUMAB (DACLIZUMAB) [Suspect]
     Indication: GRAFT VERSUS HOST DISEASE

REACTIONS (9)
  - ACUTE RESPIRATORY FAILURE [None]
  - BACTERAEMIA [None]
  - CHRONIC MYELOID LEUKAEMIA [None]
  - GRAFT VERSUS HOST DISEASE [None]
  - IMPAIRED HEALING [None]
  - LEUKAEMIA RECURRENT [None]
  - MALNUTRITION [None]
  - PERITONITIS [None]
  - PNEUMONIA [None]
